FAERS Safety Report 12281099 (Version 1)
Quarter: 2016Q2

REPORT INFORMATION
  Report Type: Spontaneous
  Country: US (occurrence: None)
  Receive Date: 20160418
  Receipt Date: 20160418
  Transmission Date: 20160815
  Serious: No
  Sender: FDA-Public Use
  Company Number: None

PATIENT
  Age: 61 Year
  Sex: Female

DRUGS (1)
  1. ACYCLOVIR. [Suspect]
     Active Substance: ACYCLOVIR
     Route: 048
     Dates: start: 20160226, end: 20160411

REACTIONS (4)
  - Product substitution issue [None]
  - Alanine aminotransferase increased [None]
  - Constipation [None]
  - Aspartate aminotransferase increased [None]

NARRATIVE: CASE EVENT DATE: 20160226
